FAERS Safety Report 21158363 (Version 1)
Quarter: 2022Q3

REPORT INFORMATION
  Report Type: Other
  Country: FI (occurrence: FI)
  Receive Date: 20220801
  Receipt Date: 20220801
  Transmission Date: 20221026
  Serious: Yes (Other)
  Sender: FDA-Public Use
  Company Number: None

PATIENT

DRUGS (1)
  1. RUXOLITINIB [Suspect]
     Active Substance: RUXOLITINIB
     Indication: Myelofibrosis
     Dosage: 40 MG, QD
     Route: 048
     Dates: start: 201606, end: 20220705

REACTIONS (2)
  - Bowen^s disease [Recovered/Resolved with Sequelae]
  - Neuroendocrine carcinoma of the skin [Recovered/Resolved with Sequelae]

NARRATIVE: CASE EVENT DATE: 20211001
